FAERS Safety Report 13415187 (Version 1)
Quarter: 2017Q2

REPORT INFORMATION
  Report Type: Spontaneous
  Country: US (occurrence: US)
  Receive Date: 20170407
  Receipt Date: 20170407
  Transmission Date: 20170830
  Serious: Yes (Other)
  Sender: FDA-Public Use
  Company Number: US-JNJFOC-20170405004

PATIENT
  Sex: Male

DRUGS (17)
  1. ALLOPURINOL. [Concomitant]
     Active Substance: ALLOPURINOL
  2. LIDOCAINE. [Concomitant]
     Active Substance: LIDOCAINE
  3. ALPRAZOLAM. [Concomitant]
     Active Substance: ALPRAZOLAM
  4. CLARITIN [Concomitant]
     Active Substance: LORATADINE
     Route: 048
  5. IMBRUVICA [Suspect]
     Active Substance: IBRUTINIB
     Indication: CHRONIC LYMPHOCYTIC LEUKAEMIA
     Route: 065
  6. TRAMADOL. [Concomitant]
     Active Substance: TRAMADOL
  7. SENNA [Concomitant]
     Active Substance: SENNA LEAF\SENNOSIDES\SENNOSIDES A AND B
     Route: 048
  8. PLAVIX [Concomitant]
     Active Substance: CLOPIDOGREL BISULFATE
     Route: 048
  9. SULFAMETHOXAZOLE AND TRIMETHOPRIM [Concomitant]
     Active Substance: SULFAMETHOXAZOLE\TRIMETHOPRIM
     Dosage: 800-160 MG
  10. ONDANSETRON [Concomitant]
     Active Substance: ONDANSETRON
  11. OSELTAMIVIR [Concomitant]
     Active Substance: OSELTAMIVIR
     Dosage: 75 UNK
  12. AMBIEN [Concomitant]
     Active Substance: ZOLPIDEM TARTRATE
  13. CELEBREX [Concomitant]
     Active Substance: CELECOXIB
     Route: 048
  14. TESTOSTERONE. [Concomitant]
     Active Substance: TESTOSTERONE
  15. ACYCLOVIR. [Concomitant]
     Active Substance: ACYCLOVIR
  16. LIDOCAINE AND PRILOCAINE [Concomitant]
     Active Substance: LIDOCAINE\PRILOCAINE
  17. TYLENOL [Concomitant]
     Active Substance: ACETAMINOPHEN
     Dates: start: 20161122

REACTIONS (6)
  - Constipation [Unknown]
  - Fatigue [Unknown]
  - Anaemia [Unknown]
  - Post procedural complication [Unknown]
  - Hypothyroidism [Unknown]
  - Neoplasm malignant [Unknown]
